FAERS Safety Report 23641633 (Version 1)
Quarter: 2024Q1

REPORT INFORMATION
  Report Type: Spontaneous
  Country: ZA (occurrence: ZA)
  Receive Date: 20240318
  Receipt Date: 20240318
  Transmission Date: 20240410
  Serious: Yes (Death)
  Sender: FDA-Public Use
  Company Number: ZA-ABBOTT-2024A-1379038

PATIENT
  Sex: Male

DRUGS (7)
  1. FENOFIBRATE [Suspect]
     Active Substance: FENOFIBRATE
     Indication: Blood cholesterol
     Dosage: AT NIGHT.
     Route: 048
  2. Miblex [Concomitant]
     Indication: Plasma cell myeloma
     Dosage: MIBLEX (BORTEZOMIB) 3.5 MG ADMINISTER 2.2MG SUBCUTANEOUSLY
     Route: 058
  3. Stopayne [Concomitant]
     Indication: Pain
     Dosage: STOPAYNE (TARTRAZINE) TAKE TWO TABLETS EIGHT HOURLY
     Route: 048
  4. DAPAGLIFLOZIN PROPANEDIOL [Concomitant]
     Active Substance: DAPAGLIFLOZIN PROPANEDIOL
     Indication: Diabetes mellitus
     Dosage: IN THE MORNING.
     Route: 048
  5. Eurolen [Concomitant]
     Indication: Neoplasm malignant
     Dosage: EUROLEN (LENALIDOMIDE) 25 MG?TAKE ONE CAPSULE DAILY FROM D1- D21 WITH OR WITHOUT
     Route: 048
  6. GLICLAZIDE [Concomitant]
     Active Substance: GLICLAZIDE
     Indication: Diabetes mellitus
     Dosage: 40 MG TAKE ONE AND A HALF
     Route: 048
  7. Eurodron [Concomitant]
     Indication: Neoplasm malignant
     Dosage: ADMINISTER 4 MG AS DIRECTED
     Route: 048

REACTIONS (1)
  - Neoplasm malignant [Fatal]
